FAERS Safety Report 4601740-1 (Version None)
Quarter: 2005Q1

REPORT INFORMATION
  Report Type: 
  Country: None (occurrence: None)
  Receive Date: 20050131
  Receipt Date: 20041223
  Transmission Date: 20050727
  Serious: No
  Sender: FDA-Public Use
  Company Number: 200419786US

PATIENT
  Age: 32 Year
  Sex: Female

DRUGS (3)
  1. KETEK [Suspect]
     Dates: start: 20041215
  2. FORMOTEROL FUMARATE (FORADIL) [Concomitant]
  3. INHALED STEROIDS [Concomitant]

REACTIONS (2)
  - HEART RATE INCREASED [None]
  - TREMOR [None]
